FAERS Safety Report 6963008-8 (Version None)
Quarter: 2010Q3

REPORT INFORMATION
  Report Type: 
  Country: None (occurrence: None)
  Receive Date: 20100830
  Receipt Date: 20100816
  Transmission Date: 20110219
  Serious: Yes (Hospitalization)
  Sender: FDA-Public Use
  Company Number: A-CH2010-39077

PATIENT
  Age: 78 Year
  Sex: Male

DRUGS (4)
  1. TRACLEER [Suspect]
     Indication: PULMONARY HYPERTENSION
     Dosage: 125 MG, BID, ORAL, 62.5 MG, BID, ORAL
     Route: 048
     Dates: start: 20060801, end: 20070301
  2. TRACLEER [Suspect]
     Indication: PULMONARY HYPERTENSION
     Dosage: 125 MG, BID, ORAL, 62.5 MG, BID, ORAL
     Route: 048
     Dates: start: 20070301, end: 20100813
  3. REVATIO [Concomitant]
  4. PREVISCAN (FLUINDIONE) [Concomitant]

REACTIONS (2)
  - CYTOLYTIC HEPATITIS [None]
  - RIGHT VENTRICULAR FAILURE [None]
